FAERS Safety Report 9319574 (Version 1)
Quarter: 2013Q2

REPORT INFORMATION
  Report Type: Spontaneous
  Country: US (occurrence: US)
  Receive Date: 20130530
  Receipt Date: 20130530
  Transmission Date: 20140414
  Serious: No
  Sender: FDA-Public Use
  Company Number: US-009507513-1305USA017073

PATIENT
  Age: 16 Year
  Sex: Female

DRUGS (3)
  1. MIRALAX [Suspect]
     Indication: CONSTIPATION
     Dosage: 17 G, QID
     Route: 048
  2. MIRALAX [Suspect]
     Indication: SKIN DISORDER
     Dosage: 17 G, BID
     Route: 048
  3. MIRALAX [Suspect]
     Indication: MEDICAL OBSERVATION

REACTIONS (5)
  - Drug administered to patient of inappropriate age [Unknown]
  - Incorrect drug administration duration [Unknown]
  - Off label use [Unknown]
  - Overdose [Unknown]
  - Product contamination physical [Unknown]
